FAERS Safety Report 8853776 (Version 4)
Quarter: 2016Q2

REPORT INFORMATION
  Report Type: Spontaneous
  Country: FR (occurrence: FR)
  Receive Date: 20121023
  Receipt Date: 20160429
  Transmission Date: 20160815
  Serious: Yes (Hospitalization, Other)
  Sender: FDA-Public Use
  Company Number: FR-ELI_LILLY_AND_COMPANY-FR201210003326

PATIENT
  Age: 60 Year
  Sex: Male
  Weight: 65 kg

DRUGS (8)
  1. LEXOMIL [Concomitant]
     Active Substance: BROMAZEPAM
     Dosage: UNK
     Dates: start: 20111018
  2. IMOVANE [Concomitant]
     Active Substance: ZOPICLONE
     Dosage: UNK
     Dates: start: 20111020
  3. ZYPREXA [Concomitant]
     Active Substance: OLANZAPINE
     Dosage: UNK
     Route: 048
  4. ZYPADHERA [Suspect]
     Active Substance: OLANZAPINE PAMOATE
     Dosage: 405 MG, MONTHLY (1/M)
     Route: 030
     Dates: end: 20121005
  5. ZYPREXA [Concomitant]
     Active Substance: OLANZAPINE
     Dosage: 10 MG, UNK
     Route: 048
     Dates: end: 20111104
  6. DEROXAT [Concomitant]
     Active Substance: PAROXETINE HYDROCHLORIDE
     Dosage: UNK
     Dates: start: 20120910
  7. ZYPADHERA [Suspect]
     Active Substance: OLANZAPINE PAMOATE
     Indication: SCHIZOPHRENIA
     Dosage: 210 MG, 2/M
     Dates: start: 20111104
  8. NORSET [Concomitant]
     Active Substance: MIRTAZAPINE

REACTIONS (20)
  - Hypotension [Recovered/Resolved]
  - Amnesia [Not Recovered/Not Resolved]
  - Disorientation [Recovering/Resolving]
  - Drug level increased [Unknown]
  - Hypotonia [Recovered/Resolved]
  - Fatigue [Recovered/Resolved]
  - Vertigo [Recovering/Resolving]
  - Dysarthria [Recovered/Resolved]
  - Heart rate increased [Recovering/Resolving]
  - Condition aggravated [Recovered/Resolved]
  - Gait disturbance [Recovering/Resolving]
  - Pupils unequal [Recovering/Resolving]
  - Anxiety [Recovering/Resolving]
  - Cognitive disorder [Recovered/Resolved]
  - Asthenia [Recovering/Resolving]
  - Extrapyramidal disorder [Recovering/Resolving]
  - Confusional state [Recovered/Resolved]
  - Loss of consciousness [Recovered/Resolved]
  - Sedation [Recovered/Resolved]
  - Hypertension [Recovering/Resolving]

NARRATIVE: CASE EVENT DATE: 20121005
